FAERS Safety Report 9665836 (Version 1)
Quarter: 2013Q4

REPORT INFORMATION
  Report Type: Spontaneous
  Country: JP (occurrence: JP)
  Receive Date: 20131104
  Receipt Date: 20131104
  Transmission Date: 20140711
  Serious: Yes (Death, Hospitalization, Other)
  Sender: FDA-Public Use
  Company Number: JP-ASTELLAS-2013JP011947

PATIENT
  Age: 57 Year
  Sex: Female

DRUGS (5)
  1. PROGRAF [Suspect]
     Indication: ORGANISING PNEUMONIA
     Dosage: 1 MG, UNKNOWN/D
     Route: 048
     Dates: start: 201107, end: 201111
  2. CORTICOSTEROID NOS [Suspect]
     Indication: ORGANISING PNEUMONIA
     Dosage: UNK
     Route: 048
     Dates: start: 201006
  3. AZATHIOPRINE [Suspect]
     Indication: ORGANISING PNEUMONIA
     Dosage: 75 MG, UNKNOWN/D
     Route: 048
     Dates: start: 201011, end: 201111
  4. CORTICOSTEROID NOS [Concomitant]
     Indication: STEROID THERAPY
     Dosage: UNK
     Route: 065
     Dates: start: 201111
  5. ENDOXAN                            /00021101/ [Concomitant]
     Indication: DRUG THERAPY
     Dosage: UNK
     Route: 065
     Dates: start: 201111

REACTIONS (4)
  - Drug ineffective for unapproved indication [Unknown]
  - Diffuse large B-cell lymphoma [Fatal]
  - Progressive multifocal leukoencephalopathy [Unknown]
  - Organising pneumonia [Recovering/Resolving]
